FAERS Safety Report 8208339-9 (Version None)
Quarter: 2012Q1

REPORT INFORMATION
  Report Type: 
  Country: None (occurrence: None)
  Receive Date: 20120314
  Receipt Date: 20120310
  Transmission Date: 20120608
  Serious: Yes (Death)
  Sender: FDA-Public Use
  Company Number: PHHY2012GT021604

PATIENT
  Age: 54 Year
  Sex: Male

DRUGS (2)
  1. RASILEZ [Suspect]
     Dosage: 150 MG, UNK
  2. GALVUS MET [Suspect]
     Dosage: VILD 50 MG, MET 500 MG

REACTIONS (1)
  - DEATH [None]
